FAERS Safety Report 6638532-8 (Version None)
Quarter: 2010Q1

REPORT INFORMATION
  Report Type: 
  Country: None (occurrence: None)
  Receive Date: 20100317
  Receipt Date: 20100304
  Transmission Date: 20100710
  Serious: Yes (Hospitalization)
  Sender: FDA-Public Use
  Company Number: IT-ELI_LILLY_AND_COMPANY-IT201003001534

PATIENT
  Sex: Female

DRUGS (2)
  1. BYETTA [Suspect]
     Dosage: 5 UG, 2/D
     Dates: start: 20100101, end: 20100101
  2. HEPARIN CALCIUM [Concomitant]
     Indication: DEEP VEIN THROMBOSIS
     Dosage: UNK, UNKNOWN

REACTIONS (1)
  - PULMONARY EMBOLISM [None]
